FAERS Safety Report 10146198 (Version 1)
Quarter: 2014Q2

REPORT INFORMATION
  Report Type: Spontaneous
  Country: US (occurrence: None)
  Receive Date: 20140430
  Receipt Date: 20140430
  Transmission Date: 20141212
  Serious: Yes (Hospitalization)
  Sender: FDA-Public Use
  Company Number: None

PATIENT
  Age: 22 Year
  Sex: Female

DRUGS (10)
  1. BENLYSTA [Suspect]
     Indication: SYSTEMIC LUPUS ERYTHEMATOSUS
     Dosage: 700 MG?EVERY 2 WEEK X 3?INTRAVENOUS
     Route: 042
     Dates: start: 20140213, end: 20140410
  2. KLONOPIN [Concomitant]
  3. PLAQUENIL [Concomitant]
  4. AMBIEN [Concomitant]
  5. WELLBUTRIN [Concomitant]
  6. BACLOFEN [Concomitant]
  7. YASMIN [Concomitant]
  8. PROPRANOLOL [Concomitant]
  9. AMITRIPTYLINE [Concomitant]
  10. FLUDROCORT [Concomitant]

REACTIONS (1)
  - Blood pressure decreased [None]
